FAERS Safety Report 4345633-6 (Version None)
Quarter: 2004Q2

REPORT INFORMATION
  Report Type: 
  Country: None (occurrence: None)
  Receive Date: 20040421
  Receipt Date: 20040413
  Transmission Date: 20050107
  Serious: Yes (Hospitalization)
  Sender: FDA-Public Use
  Company Number: US072543

PATIENT
  Age: 70 Year
  Sex: Female

DRUGS (2)
  1. EPOGEN [Suspect]
     Indication: ANAEMIA OF MALIGNANT DISEASE
     Dosage: 40000 IU, 1 IN 1 WEEKS
     Dates: start: 20040217, end: 20040413
  2. PACLITAXEL [Concomitant]

REACTIONS (4)
  - HYPERTENSION [None]
  - HYPOTENSION [None]
  - NAUSEA [None]
  - VOMITING [None]
